FAERS Safety Report 19894353 (Version 1)
Quarter: 2021Q3

REPORT INFORMATION
  Report Type: Spontaneous
  Country: US (occurrence: US)
  Receive Date: 20210928
  Receipt Date: 20210928
  Transmission Date: 20211014
  Serious: No
  Sender: FDA-Public Use
  Company Number: None

PATIENT
  Sex: Female

DRUGS (1)
  1. HCG ODT (HUMAN CHORIONIC GONADOPTROPIN) ORALLY DISINTERGRATING TABLET [Suspect]
     Active Substance: GONADOTROPHIN, CHORIONIC
     Indication: WEIGHT DECREASED
     Dosage: ?          QUANTITY:1 TABLET(S);?
     Route: 060

REACTIONS (3)
  - Tongue discomfort [None]
  - Suspected product quality issue [None]
  - Product substitution issue [None]

NARRATIVE: CASE EVENT DATE: 20210924
